FAERS Safety Report 13583877 (Version 1)
Quarter: 2017Q2

REPORT INFORMATION
  Report Type: Spontaneous
  Country: US (occurrence: US)
  Receive Date: 20170526
  Receipt Date: 20170526
  Transmission Date: 20170830
  Serious: Yes (Hospitalization, Other)
  Sender: FDA-Public Use
  Company Number: US-APOTEX-2017AP012411

PATIENT
  Age: 29 Year
  Sex: Female

DRUGS (1)
  1. CLONAZEPAM TABLETS USP [Suspect]
     Active Substance: CLONAZEPAM
     Indication: PRODUCT USED FOR UNKNOWN INDICATION
     Dosage: UNK
     Route: 065

REACTIONS (4)
  - Intentional product misuse [Unknown]
  - Unresponsive to stimuli [Unknown]
  - Overdose [Unknown]
  - Suicide attempt [Unknown]
